FAERS Safety Report 7674637-0 (Version None)
Quarter: 2011Q3

REPORT INFORMATION
  Report Type: 
  Country: None (occurrence: None)
  Receive Date: 20110810
  Receipt Date: 20110802
  Transmission Date: 20111222
  Serious: Yes (Death, Hospitalization)
  Sender: FDA-Public Use
  Company Number: MX-ROCHE-771317

PATIENT
  Sex: Male
  Weight: 65.5 kg

DRUGS (15)
  1. TOCILIZUMAB [Suspect]
     Route: 042
     Dates: start: 20070402
  2. TOCILIZUMAB [Suspect]
     Dosage: LAST DOSE PRIOR TO SAE: 28 FEB 2011
     Route: 042
     Dates: end: 20110328
  3. CHLOROQUINE [Concomitant]
     Route: 048
     Dates: start: 20030101, end: 20110503
  4. FOLIC ACID [Concomitant]
     Dates: start: 20050101, end: 20110503
  5. SINERGIX [Concomitant]
     Dosage: 25/10 MG
     Dates: start: 20050101, end: 20110503
  6. TOCILIZUMAB [Suspect]
     Route: 042
     Dates: start: 20070502
  7. TOCILIZUMAB [Suspect]
     Route: 042
     Dates: start: 20070530
  8. ACETAMINOPHEN [Concomitant]
     Route: 048
     Dates: start: 20050101, end: 20110503
  9. SENNOSIDE A+B [Concomitant]
     Dosage: FREQUENCY: AS NECESSARY
     Dates: start: 20060815, end: 20110303
  10. PREDNISONE [Concomitant]
     Route: 048
     Dates: start: 20050101, end: 20110503
  11. TOCILIZUMAB [Suspect]
     Dosage: FORM REPORTED AS VIAL, LAST DOSE PRIOR TO SAE: 25 JUNE 2007.
     Route: 042
     Dates: start: 20060822
  12. TOCILIZUMAB [Suspect]
     Route: 042
     Dates: start: 20070625
  13. TOCILIZUMAB [Suspect]
     Indication: RHEUMATOID ARTHRITIS
     Dosage: DOSE FORM: VIAL
     Route: 042
     Dates: start: 20060111
  14. TOCILIZUMAB [Suspect]
     Dosage: PREVIOUSLY ENROLLED IN WA18063
     Route: 042
  15. METHOTREXATE [Suspect]
     Indication: RHEUMATOID ARTHRITIS
     Route: 048
     Dates: start: 20030101, end: 20110328

REACTIONS (1)
  - THROMBOCYTOPENIA [None]
